FAERS Safety Report 10067952 (Version 1)
Quarter: 2014Q2

REPORT INFORMATION
  Report Type: Report from Study
  Country: EG (occurrence: EG)
  Receive Date: 20140409
  Receipt Date: 20140409
  Transmission Date: 20141212
  Serious: Yes (Other)
  Sender: FDA-Public Use
  Company Number: PHHY2014EG042129

PATIENT
  Sex: 0

DRUGS (1)
  1. EXFORGE HCT [Suspect]

REACTIONS (1)
  - Influenza like illness [Recovered/Resolved]
